FAERS Safety Report 24646570 (Version 1)
Quarter: 2024Q4

REPORT INFORMATION
  Report Type: Spontaneous
  Country: CN (occurrence: CN)
  Receive Date: 20241121
  Receipt Date: 20241121
  Transmission Date: 20250114
  Serious: Yes (Other)
  Sender: Haleon PLC
  Company Number: CN-HALEON-2210109

PATIENT
  Age: 67 Year
  Sex: Female
  Weight: 42 kg

DRUGS (2)
  1. DICLOFENAC SODIUM [Suspect]
     Active Substance: DICLOFENAC SODIUM
     Indication: Nasopharyngitis
     Route: 048
     Dates: start: 20241017, end: 20241021
  2. DICLOFENAC SODIUM [Suspect]
     Active Substance: DICLOFENAC SODIUM
     Indication: Myalgia

REACTIONS (7)
  - Drug eruption [Recovering/Resolving]
  - Sleep disorder [Recovering/Resolving]
  - Rash maculo-papular [Recovering/Resolving]
  - Papule [Recovering/Resolving]
  - Macule [Recovering/Resolving]
  - Pruritus [Recovering/Resolving]
  - Erythema [Recovering/Resolving]

NARRATIVE: CASE EVENT DATE: 20241022
